FAERS Safety Report 14273536 (Version 2)
Quarter: 2018Q1

REPORT INFORMATION
  Report Type: Report from Study
  Country: US (occurrence: AR)
  Receive Date: 20171212
  Receipt Date: 20180119
  Transmission Date: 20180508
  Serious: Yes (Death, Hospitalization, Other)
  Sender: FDA-Public Use
  Company Number: US-SUNOVION-2017SUN005261

PATIENT
  Sex: Male

DRUGS (4)
  1. INDACATEROL AND GLYCOPYRROLATE [Suspect]
     Active Substance: GLYCOPYRROLATE\INDACATEROL MALEATE
     Indication: PRODUCT USED FOR UNKNOWN INDICATION
     Dosage: 1 DF, QD
     Route: 055
     Dates: end: 201709
  2. EXFORGE [Suspect]
     Active Substance: AMLODIPINE BESYLATE\VALSARTAN
     Indication: HYPERTENSION
     Dosage: 1 DF, QD (IN MORNING)
  3. CARVEDILOL. [Concomitant]
     Active Substance: CARVEDILOL
     Dosage: UNK
  4. ATORVASTATIN [Concomitant]
     Active Substance: ATORVASTATIN
     Dosage: UNK

REACTIONS (11)
  - Chronic obstructive pulmonary disease [Unknown]
  - Type 2 diabetes mellitus [Unknown]
  - Cardiac valve disease [Unknown]
  - Pneumonia [Unknown]
  - Renal neoplasm [Unknown]
  - Single functional kidney [Unknown]
  - Endocarditis [Fatal]
  - Renal failure [Unknown]
  - Pain [Unknown]
  - Infection [Unknown]
  - Gait inability [Unknown]

NARRATIVE: CASE EVENT DATE: 2017
